FAERS Safety Report 16161033 (Version 1)
Quarter: 2019Q2

REPORT INFORMATION
  Report Type: Spontaneous
  Country: DE (occurrence: DE)
  Receive Date: 20190405
  Receipt Date: 20190405
  Transmission Date: 20190711
  Serious: Yes (Other)
  Sender: FDA-Public Use
  Company Number: DE-ASTELLAS-2019US013930

PATIENT
  Sex: Female

DRUGS (1)
  1. VESIKUR [Suspect]
     Active Substance: SOLIFENACIN SUCCINATE
     Indication: PRODUCT USED FOR UNKNOWN INDICATION
     Dosage: UNK UNK, (1 AND A QUARTER OF A YEAR)
     Route: 065

REACTIONS (2)
  - Bladder sphincter atony [Unknown]
  - Headache [Unknown]
